FAERS Safety Report 20837525 (Version 1)
Quarter: 2022Q2

REPORT INFORMATION
  Report Type: Spontaneous
  Country: PL (occurrence: PL)
  Receive Date: 20220517
  Receipt Date: 20220517
  Transmission Date: 20220721
  Serious: Yes (Hospitalization)
  Sender: FDA-Public Use
  Company Number: PL-NOVARTISPH-NVSC2022PL110476

PATIENT
  Age: 43 Year
  Sex: Female

DRUGS (2)
  1. CYCLOSPORINE [Suspect]
     Active Substance: CYCLOSPORINE
     Indication: Product used for unknown indication
     Dosage: 250 MG, QD, (3.4 MG / KG BODY  WEIGHT)
     Route: 065
     Dates: start: 2017, end: 2019
  2. METHOTREXATE [Suspect]
     Active Substance: METHOTREXATE
     Indication: Product used for unknown indication
     Dosage: 15 MG, QW (13 COURSES IN ALL)
     Route: 065

REACTIONS (8)
  - Psoriasis [Unknown]
  - Erythrodermic psoriasis [Unknown]
  - Skin exfoliation [Unknown]
  - Affect lability [Unknown]
  - Anxiety disorder [Unknown]
  - Depression [Unknown]
  - Panic attack [Unknown]
  - Drug ineffective [Unknown]
